FAERS Safety Report 5812417-9 (Version None)
Quarter: 2008Q3

REPORT INFORMATION
  Report Type: 
  Country: None (occurrence: None)
  Receive Date: 20080711
  Receipt Date: 20080703
  Transmission Date: 20090109
  Serious: Yes (Life-Threatening)
  Sender: FDA-Public Use
  Company Number: GXKR2008GB06226

PATIENT
  Age: 50 Year
  Sex: Female

DRUGS (7)
  1. CODEINE PHOSPHATE SANDOZ (NGX) (CODEINE PHOSPHATE) UNKNOWN [Suspect]
     Indication: PAIN
     Dosage: 30 MG, ORAL
     Route: 048
     Dates: start: 20080614, end: 20080614
  2. AMITRIPTYLINE HYDROCHLORIDE [Concomitant]
  3. CODEINE PHOSPHATE AND ACETAMINOPHEN [Concomitant]
  4. GLIMEPIRIDE [Concomitant]
  5. PAROXETINE HCL [Concomitant]
  6. PERINDOPRIL ERBUMINE [Concomitant]
  7. ROSIGLITAZONE [Concomitant]

REACTIONS (1)
  - SWOLLEN TONGUE [None]
